FAERS Safety Report 22926420 (Version 2)
Quarter: 2023Q4

REPORT INFORMATION
  Report Type: Spontaneous
  Country: US (occurrence: US)
  Receive Date: 20230909
  Receipt Date: 20231107
  Transmission Date: 20240109
  Serious: Yes (Other)
  Sender: FDA-Public Use
  Company Number: US-CELLTRION INC.-2023US017602

PATIENT

DRUGS (3)
  1. INFLECTRA [Suspect]
     Active Substance: INFLIXIMAB-DYYB
     Indication: Product used for unknown indication
     Dosage: 100 MG VIAL
  2. INFLECTRA [Suspect]
     Active Substance: INFLIXIMAB-DYYB
     Dosage: 1200 MG/120 UNITS PER VISIT AT WEEKS 0, 2, 6 THEN ADMINISTERED NO MORE OFTEN THAN ONCE EVERY 4 WEEKS
     Route: 065
  3. RENFLEXIS [Suspect]
     Active Substance: INFLIXIMAB-ABDA
     Indication: Product used for unknown indication
     Dosage: 1200 MG/120 UNITS PER VISIT AT WEEKS 0, 2, 6 THEN ADMINISTERED NO MORE OFTEN THAN ONCE EVERY 4 WEEKS
     Route: 065

REACTIONS (2)
  - Crohn^s disease [Unknown]
  - Intestinal obstruction [Unknown]
